FAERS Safety Report 7881419-3 (Version None)
Quarter: 2011Q4

REPORT INFORMATION
  Report Type: 
  Country: None (occurrence: None)
  Receive Date: 20111101
  Receipt Date: 20110524
  Transmission Date: 20120403
  Serious: No
  Sender: FDA-Public Use
  Company Number: US-AMGEN-USASP2011027014

PATIENT
  Age: 52 Year
  Sex: Female

DRUGS (2)
  1. METHOTREXATE [Concomitant]
     Dates: start: 20090101
  2. ENBREL [Suspect]
     Indication: PROSTATIC SPECIFIC ANTIGEN
     Dosage: 50 MG, QWK
     Dates: start: 20110504, end: 20110504

REACTIONS (4)
  - OROPHARYNGEAL PAIN [None]
  - COUGH [None]
  - SINUS CONGESTION [None]
  - PYREXIA [None]
